FAERS Safety Report 15118547 (Version 1)
Quarter: 2018Q3

REPORT INFORMATION
  Report Type: Spontaneous
  Country: KR (occurrence: KR)
  Receive Date: 20180709
  Receipt Date: 20180709
  Transmission Date: 20181010
  Serious: Yes (Hospitalization, Other)
  Sender: FDA-Public Use
  Company Number: KR-AXELLIA-001764

PATIENT
  Age: 71 Year
  Sex: Male

DRUGS (2)
  1. COLISTIN [Suspect]
     Active Substance: COLISTIN
     Indication: PSEUDOMONAS INFECTION
     Dosage: 150 MG EVERY 12 H, REDUCED TO 50MG
     Route: 042
  2. VANCOMYCIN [Suspect]
     Active Substance: VANCOMYCIN
     Indication: STAPHYLOCOCCAL INFECTION

REACTIONS (3)
  - Drug ineffective [Unknown]
  - Acute kidney injury [Unknown]
  - Nephropathy toxic [Unknown]
